FAERS Safety Report 13507324 (Version 1)
Quarter: 2017Q2

REPORT INFORMATION
  Report Type: Spontaneous
  Country: US (occurrence: US)
  Receive Date: 20170502
  Receipt Date: 20170502
  Transmission Date: 20170830
  Serious: Yes (Hospitalization, Disabling)
  Sender: FDA-Public Use
  Company Number: None

PATIENT
  Age: 53 Year
  Sex: Female
  Weight: 56.25 kg

DRUGS (9)
  1. FLEXERIL [Concomitant]
     Active Substance: CYCLOBENZAPRINE HYDROCHLORIDE
  2. XELJANZ [Suspect]
     Active Substance: TOFACITINIB CITRATE
     Indication: RHEUMATOID ARTHRITIS
     Route: 048
     Dates: start: 20160819, end: 20170119
  3. METOPROLOL. [Concomitant]
     Active Substance: METOPROLOL
  4. METHOTREXATE. [Concomitant]
     Active Substance: METHOTREXATE
  5. PROGESTERONE. [Concomitant]
     Active Substance: PROGESTERONE
  6. VITAMIN C [Concomitant]
     Active Substance: ASCORBIC ACID
  7. ESTRADIOL. [Concomitant]
     Active Substance: ESTRADIOL
  8. VITAMIN D [Concomitant]
     Active Substance: CHOLECALCIFEROL
  9. ORENCIA [Concomitant]
     Active Substance: ABATACEPT

REACTIONS (3)
  - Malaise [None]
  - Gastrointestinal haemorrhage [None]
  - Colitis [None]

NARRATIVE: CASE EVENT DATE: 20170119
